FAERS Safety Report 14953852 (Version 1)
Quarter: 2018Q2

REPORT INFORMATION
  Report Type: Report from Study
  Country: US (occurrence: US)
  Receive Date: 20180530
  Receipt Date: 20180530
  Transmission Date: 20180711
  Serious: Yes (Other)
  Sender: FDA-Public Use
  Company Number: US-MYLANLABS-2018M1035879

PATIENT
  Age: 27 Year
  Sex: Female

DRUGS (6)
  1. BUPIVACAINE. [Suspect]
     Active Substance: BUPIVACAINE
     Indication: PRODUCT USED FOR UNKNOWN INDICATION
     Dosage: INFUSION SOLUTION OF 0.1% BUPIVACAINE AND 1.2 UG/ML CLONIDINE STARTED AT 10 ML/H WITH CONTROLLED ...
     Route: 065
  2. BUPIVACAINE. [Suspect]
     Active Substance: BUPIVACAINE
     Dosage: 0.125 %
     Route: 008
  3. BUPRENORPHINE. [Suspect]
     Active Substance: BUPRENORPHINE
     Indication: DEPENDENCE
     Dosage: 16 MG, QD
     Route: 065
  4. CLONIDINE. [Suspect]
     Active Substance: CLONIDINE
     Indication: PRODUCT USED FOR UNKNOWN INDICATION
     Dosage: INFUSION SOLUTION OF 1.2 UG/ML CLONIDINE AND 0.1% BUPIVACAINE AT 10 ML/H WITH CONTROLLED BOLUS OP...
     Route: 008
  5. EPINEPHRINE. [Suspect]
     Active Substance: EPINEPHRINE
     Indication: PRODUCT USED FOR UNKNOWN INDICATION
     Dosage: 1.2 UG/ML
     Route: 008
  6. FENTANYL. [Suspect]
     Active Substance: FENTANYL
     Indication: PRODUCT USED FOR UNKNOWN INDICATION
     Dosage: 5 UG/ML
     Route: 008

REACTIONS (3)
  - Maternal exposure during delivery [Recovered/Resolved]
  - Hypotension [Unknown]
  - Maternal exposure during pregnancy [Recovered/Resolved]
